FAERS Safety Report 5321266-X (Version None)
Quarter: 2007Q2

REPORT INFORMATION
  Report Type: 
  Country: None (occurrence: None)
  Receive Date: 20070504
  Receipt Date: 20070423
  Transmission Date: 20071010
  Serious: Yes (Other)
  Sender: FDA-Public Use
  Company Number: SPV1-2007-02216

PATIENT
  Age: 6 Year
  Sex: Male
  Weight: 20 kg

DRUGS (2)
  1. CARBATROL [Suspect]
     Indication: EPILEPSY
     Dosage: 300 MG 2X'S DAILY, ORAL
     Route: 048
     Dates: start: 20060701
  2. DEPAKENE /00228501/ (VALPROIC ACID) [Concomitant]

REACTIONS (7)
  - CONVULSION [None]
  - DRUG LEVEL DECREASED [None]
  - HEADACHE [None]
  - PHARMACEUTICAL PRODUCT COMPLAINT [None]
  - SCREAMING [None]
  - TREMOR [None]
  - VOMITING [None]
